FAERS Safety Report 14466299 (Version 2)
Quarter: 2018Q1

REPORT INFORMATION
  Report Type: Spontaneous
  Country: US (occurrence: US)
  Receive Date: 20180131
  Receipt Date: 20180223
  Transmission Date: 20180509
  Serious: Yes (Other)
  Sender: FDA-Public Use
  Company Number: US-AUROBINDO-AUR-APU-2018-002976

PATIENT
  Sex: Female

DRUGS (1)
  1. METHENAMINE HIPPURATE TABLET USP 1G [Suspect]
     Active Substance: METHENAMINE HIPPURATE
     Indication: PRODUCT USED FOR UNKNOWN INDICATION
     Route: 065

REACTIONS (2)
  - Leukaemia [Unknown]
  - Abdominal pain [Not Recovered/Not Resolved]
